FAERS Safety Report 15853875 (Version 1)
Quarter: 2019Q1

REPORT INFORMATION
  Report Type: Spontaneous
  Country: SE (occurrence: SE)
  Receive Date: 20190122
  Receipt Date: 20190122
  Transmission Date: 20190417
  Serious: Yes (Hospitalization, Disabling)
  Sender: FDA-Public Use
  Company Number: SE-PROVELL PHARMACEUTICALS-2061548

PATIENT
  Age: 51 Year
  Sex: Female

DRUGS (2)
  1. LEVAXIN [Concomitant]
     Active Substance: LEVOTHYROXINE SODIUM
     Dates: start: 1998, end: 2018
  2. EUTHYROX [Suspect]
     Active Substance: LEVOTHYROXINE SODIUM
     Indication: AUTOIMMUNE THYROIDITIS
     Route: 048
     Dates: start: 201805, end: 201808

REACTIONS (1)
  - Myalgia [Not Recovered/Not Resolved]

NARRATIVE: CASE EVENT DATE: 2018
